FAERS Safety Report 4626763-8 (Version None)
Quarter: 2005Q2

REPORT INFORMATION
  Report Type: 
  Country: None (occurrence: None)
  Receive Date: 20050405
  Receipt Date: 20050321
  Transmission Date: 20051028
  Serious: Yes (Hospitalization)
  Sender: FDA-Public Use
  Company Number: US-KINGPHARMUSA00001-K200500395

PATIENT
  Age: 82 Year
  Sex: Male

DRUGS (6)
  1. ALTACE [Suspect]
     Dosage: 1 U, QD
     Route: 048
     Dates: end: 20040905
  2. ALDALIX [Suspect]
     Indication: HYPERTENSIVE HEART DISEASE
     Dosage: 50/20 MG, QD
     Route: 048
     Dates: end: 20040903
  3. ASPEGIC 1000 [Concomitant]
     Dosage: 1 U, UNK
     Route: 048
  4. ACEBUTOLOL HCL [Concomitant]
     Indication: HYPERTENSIVE HEART DISEASE
     Dosage: 1 U, UNK
     Route: 048
     Dates: end: 20040902
  5. NICARDIPINE HCL [Concomitant]
     Indication: HYPERTENSIVE HEART DISEASE
     Dosage: 100 MG, UNK
     Route: 048
     Dates: end: 20040902
  6. METFORMIN HCL [Concomitant]
     Dosage: 1,500 MG, UNK
     Route: 048
     Dates: end: 20040902

REACTIONS (6)
  - DEHYDRATION [None]
  - DIARRHOEA [None]
  - DRUG INTERACTION [None]
  - HYPERKALAEMIA [None]
  - HYPONATRAEMIA [None]
  - RENAL FAILURE ACUTE [None]
